FAERS Safety Report 16393159 (Version 2)
Quarter: 2019Q3

REPORT INFORMATION
  Report Type: Report from Study
  Country: GB (occurrence: GB)
  Receive Date: 20190605
  Receipt Date: 20190711
  Transmission Date: 20191004
  Serious: Yes (Hospitalization, Other)
  Sender: FDA-Public Use
  Company Number: GB-BRISTOL-MYERS SQUIBB COMPANY-BMS-2019-048936

PATIENT
  Age: 57 Year
  Sex: Male
  Weight: 104.6 kg

DRUGS (17)
  1. CLENIL A [Concomitant]
     Active Substance: BECLOMETHASONE DIPROPIONATE
     Indication: ASTHMA
     Dosage: 1 DOSAGE FORM, QD
     Dates: start: 201604
  2. AMLODIPINE [Concomitant]
     Active Substance: AMLODIPINE BESYLATE
     Indication: HYPERTENSION
     Dosage: 5 MILLIGRAM, QD
     Route: 048
     Dates: start: 20190327
  3. PARACETAMOL [Concomitant]
     Active Substance: ACETAMINOPHEN
     Indication: PAIN
     Dosage: UNK UNK, QID
     Route: 048
     Dates: start: 20171213
  4. GLANDOSANE [CALCIUM CHLORIDE DIHYDRATE;CARMELLOSE SODIUM;MAGNESIUM CHL [Concomitant]
     Indication: DRY MOUTH
     Dosage: 1 DOSAGE FORM, PRN
     Route: 048
  5. NAPROXEN. [Concomitant]
     Active Substance: NAPROXEN
     Indication: PAIN
     Dosage: 500 MILLIGRAM, BID
     Route: 048
     Dates: start: 20180124, end: 20190517
  6. ZOMORPH [Concomitant]
     Active Substance: MORPHINE SULFATE
     Indication: PAIN
     Dosage: 30 MILLIGRAM, BID
     Route: 048
     Dates: start: 20190426
  7. PROVERA [Concomitant]
     Active Substance: MEDROXYPROGESTERONE ACETATE
     Indication: HOT FLUSH
     Dosage: 10 MILLIGRAM, BID
     Route: 048
     Dates: start: 20180613
  8. ORAMORPH [MORPHINE SULFATE] [Concomitant]
     Indication: PAIN
     Dosage: 20 MILLIGRAM, PRN
     Route: 048
     Dates: start: 20190426
  9. PREGABALIN. [Concomitant]
     Active Substance: PREGABALIN
     Indication: PAIN
     Dosage: 150 MILLIGRAM, QD
     Route: 048
     Dates: start: 20181213
  10. NIVOLUMAB [Suspect]
     Active Substance: NIVOLUMAB
     Indication: PROSTATE CANCER
     Dosage: 1 MILLIGRAM/KILOGRAM, Q3WK
     Route: 042
     Dates: start: 20190409
  11. MIRABEGRON [Concomitant]
     Active Substance: MIRABEGRON
     Indication: HYPERTONIC BLADDER
     Dosage: 25 MILLIGRAM, QD
     Route: 048
     Dates: start: 20180124
  12. FUROSEMIDE. [Concomitant]
     Active Substance: FUROSEMIDE
     Indication: OEDEMA PERIPHERAL
     Dosage: 20 MILLIGRAM, BID
     Route: 048
     Dates: start: 20190409
  13. RANITIDINE. [Concomitant]
     Active Substance: RANITIDINE
     Indication: PRODUCT USED FOR UNKNOWN INDICATION
     Dosage: 150 MILLIGRAM, BID
     Route: 048
     Dates: start: 20180124
  14. MUPIROCIN. [Concomitant]
     Active Substance: MUPIROCIN
     Indication: RHINITIS
     Dosage: 2 PERCENT, BID
     Route: 045
     Dates: start: 20190516
  15. IPILIMUMAB [Suspect]
     Active Substance: IPILIMUMAB
     Indication: PROSTATE CANCER
     Dosage: 3 MILLIGRAM/KILOGRAM, Q3WK
     Route: 065
     Dates: start: 20190409
  16. RIVAROXABAN [Concomitant]
     Active Substance: RIVAROXABAN
     Indication: PULMONARY EMBOLISM
     Dosage: 20 MILLIGRAM, QD
     Route: 048
     Dates: start: 201812, end: 20190517
  17. STERIMAR BABY [Concomitant]
     Indication: NASAL DRYNESS
     Dosage: UNK UNK, TID
     Route: 045
     Dates: start: 20190516

REACTIONS (1)
  - Acute kidney injury [Not Recovered/Not Resolved]

NARRATIVE: CASE EVENT DATE: 20190516
